FAERS Safety Report 16501232 (Version 1)
Quarter: 2019Q3

REPORT INFORMATION
  Report Type: Spontaneous
  Country: CN (occurrence: CN)
  Receive Date: 20190701
  Receipt Date: 20190701
  Transmission Date: 20191004
  Serious: Yes (Other)
  Sender: FDA-Public Use
  Company Number: CN-PFIZER INC-2019271806

PATIENT
  Age: 69 Year
  Sex: Male

DRUGS (4)
  1. 5-FU [FLUOROURACIL] [Suspect]
     Active Substance: FLUOROURACIL
     Indication: NEOPLASM MALIGNANT
     Dosage: 0.8 G, 1X/DAY
     Route: 041
     Dates: start: 20190322, end: 20190325
  2. 5-FU [FLUOROURACIL] [Suspect]
     Active Substance: FLUOROURACIL
     Dosage: 4.75 G, 1X/DAY
     Dates: start: 20190322, end: 20190325
  3. CAMPTO [Suspect]
     Active Substance: IRINOTECAN
     Indication: NEOPLASM MALIGNANT
     Dosage: 160 MG, 1X/DAY
     Route: 041
     Dates: start: 20190322, end: 20190325
  4. AI LI [Suspect]
     Active Substance: IRINOTECAN HYDROCHLORIDE
     Indication: NEOPLASM MALIGNANT
     Dosage: 200 MG, 1X/DAY
     Route: 041
     Dates: start: 20190322, end: 20190325

REACTIONS (3)
  - Neutrophil count decreased [Unknown]
  - White blood cell count decreased [Unknown]
  - Red blood cell count decreased [Unknown]

NARRATIVE: CASE EVENT DATE: 20190407
